FAERS Safety Report 9192094 (Version 1)
Quarter: 2013Q1

REPORT INFORMATION
  Report Type: Spontaneous
  Country: FR (occurrence: None)
  Receive Date: 20130325
  Receipt Date: 20130325
  Transmission Date: 20140127
  Serious: Yes (Other)
  Sender: FDA-Public Use
  Company Number: 2013-04962

PATIENT
  Age: 74 Year
  Sex: 0

DRUGS (3)
  1. PACLITAXEL [Suspect]
  2. LAPATINIB (LAPATINIB) [Suspect]
     Dosage: 1 WEEK
     Route: 042
     Dates: start: 200910
  3. LAPATINIB (LAPATINIB) [Suspect]
     Dosage: 1 WEEK
     Route: 042
     Dates: start: 200910

REACTIONS (2)
  - Diarrhoea [None]
  - Drug interaction [None]
